FAERS Safety Report 6081404-0 (Version None)
Quarter: 2009Q1

REPORT INFORMATION
  Report Type: 
  Country: None (occurrence: None)
  Receive Date: 20090218
  Receipt Date: 20090212
  Transmission Date: 20090719
  Serious: Yes (Other)
  Sender: FDA-Public Use
  Company Number: US-ASTRAZENECA-2007UW18238

PATIENT
  Age: 54 Year
  Sex: Female
  Weight: 63.5 kg

DRUGS (2)
  1. TOPROL-XL [Suspect]
     Indication: HYPERTENSION
     Route: 048
  2. ASPIRIN [Concomitant]

REACTIONS (5)
  - ANXIETY [None]
  - DYSPNOEA [None]
  - RETINAL ARTERY OCCLUSION [None]
  - RETINAL VEIN OCCLUSION [None]
  - WHEEZING [None]
